FAERS Safety Report 18777871 (Version 3)
Quarter: 2021Q2

REPORT INFORMATION
  Report Type: Spontaneous
  Country: US (occurrence: US)
  Receive Date: 20210122
  Receipt Date: 20210423
  Transmission Date: 20210717
  Serious: No
  Sender: FDA-Public Use
  Company Number: 2020SGN03483

PATIENT
  Sex: Female

DRUGS (2)
  1. TUKYSA [Suspect]
     Active Substance: TUCATINIB
     Indication: BREAST CANCER FEMALE
     Dosage: UNK, BID
     Route: 048
  2. CAPECITABINE. [Concomitant]
     Active Substance: CAPECITABINE
     Indication: BREAST CANCER FEMALE

REACTIONS (6)
  - Unevaluable event [Unknown]
  - Diarrhoea [Unknown]
  - Product dose omission issue [Unknown]
  - Laboratory test abnormal [Unknown]
  - Platelet count decreased [Unknown]
  - Blood bilirubin decreased [Unknown]
